FAERS Safety Report 19469576 (Version 3)
Quarter: 2021Q3

REPORT INFORMATION
  Report Type: Spontaneous
  Country: US (occurrence: US)
  Receive Date: 20210629
  Receipt Date: 20210702
  Transmission Date: 20211014
  Serious: Yes (Other)
  Sender: FDA-Public Use
  Company Number: US-B.I. PHARMACEUTICALS,INC./RIDGEFIELD-2021-BI-112263

PATIENT
  Age: 55 Year
  Sex: Female

DRUGS (1)
  1. JARDIANCE [Suspect]
     Active Substance: EMPAGLIFLOZIN
     Indication: DIABETES MELLITUS
     Dosage: 1 TABLET DAILY
     Dates: start: 202106, end: 202106

REACTIONS (4)
  - Abdominal pain [Recovering/Resolving]
  - Perineal ulceration [Not Recovered/Not Resolved]
  - Chills [Not Recovered/Not Resolved]
  - Thirst [Recovering/Resolving]

NARRATIVE: CASE EVENT DATE: 202106
